FAERS Safety Report 5902986-2 (Version None)
Quarter: 2008Q3

REPORT INFORMATION
  Report Type: 
  Country: None (occurrence: None)
  Receive Date: 20080930
  Receipt Date: 20080722
  Transmission Date: 20090109
  Serious: No
  Sender: FDA-Public Use
  Company Number: US-BAYER-200829262NA

PATIENT
  Age: 40 Year
  Sex: Female
  Weight: 82 kg

DRUGS (1)
  1. MIRENA [Suspect]
     Indication: MENORRHAGIA
     Route: 015
     Dates: start: 20080327

REACTIONS (4)
  - ABDOMINAL DISTENSION [None]
  - BREAST TENDERNESS [None]
  - MENORRHAGIA [None]
  - VAGINAL HAEMORRHAGE [None]
